FAERS Safety Report 19944213 (Version 1)
Quarter: 2021Q4

REPORT INFORMATION
  Report Type: Spontaneous
  Country: US (occurrence: US)
  Receive Date: 20211011
  Receipt Date: 20211011
  Transmission Date: 20220303
  Serious: No
  Sender: FDA-Public Use
  Company Number: US-JUBILANT CADISTA PHARMACEUTICALS-2021JUB00086

PATIENT
  Sex: Male

DRUGS (5)
  1. PREDNISONE [Suspect]
     Active Substance: PREDNISONE
     Indication: Chronic obstructive pulmonary disease
     Dosage: 10 MG, 1X/DAY
     Route: 048
     Dates: start: 20210224, end: 2021
  2. PREDNISONE [Suspect]
     Active Substance: PREDNISONE
     Dosage: 20 MG, 1X/DAY
     Route: 048
     Dates: start: 2021, end: 2021
  3. PREDNISONE [Suspect]
     Active Substance: PREDNISONE
     Dosage: 50 MG, 1X/DAY
     Route: 048
     Dates: start: 2021, end: 2021
  4. PREDNISONE [Suspect]
     Active Substance: PREDNISONE
     Dosage: ^TAPERING DOSES^
     Dates: start: 2021, end: 20210326
  5. ALBUTEROL [Suspect]
     Active Substance: ALBUTEROL
     Dosage: 2 DF, 4X/DAY
     Dates: start: 20210224

REACTIONS (1)
  - Agitation [Not Recovered/Not Resolved]

NARRATIVE: CASE EVENT DATE: 20210225
